FAERS Safety Report 25198650 (Version 1)
Quarter: 2025Q2

REPORT INFORMATION
  Report Type: Spontaneous
  Country: US (occurrence: US)
  Receive Date: 20250415
  Receipt Date: 20250415
  Transmission Date: 20250717
  Serious: Yes (Hospitalization, Other)
  Sender: AUROBINDO
  Company Number: US-AUROBINDO-AUR-APL-2025-019022

PATIENT
  Age: 40 Year
  Sex: Male

DRUGS (1)
  1. ARMODAFINIL [Suspect]
     Active Substance: ARMODAFINIL
     Indication: Obstructive sleep apnoea syndrome
     Route: 065

REACTIONS (3)
  - Cardiomyopathy [Recovered/Resolved]
  - Arteriospasm coronary [Unknown]
  - Ventricular fibrillation [Unknown]
